FAERS Safety Report 5826634-5 (Version None)
Quarter: 2008Q3

REPORT INFORMATION
  Report Type: 
  Country: None (occurrence: None)
  Receive Date: 20080728
  Receipt Date: 20080728
  Transmission Date: 20090109
  Serious: Yes (Other)
  Sender: FDA-Public Use
  Company Number: None

PATIENT
  Age: 54 Year
  Sex: Female
  Weight: 141.0687 kg

DRUGS (1)
  1. BYETTA [Suspect]

REACTIONS (2)
  - ADNEXA UTERI PAIN [None]
  - AMENORRHOEA [None]
